FAERS Safety Report 25525547 (Version 1)
Quarter: 2025Q3

REPORT INFORMATION
  Report Type: Spontaneous
  Country: JP (occurrence: JP)
  Receive Date: 20250707
  Receipt Date: 20250707
  Transmission Date: 20251020
  Serious: Yes (Other)
  Sender: MYLAN
  Company Number: JP-MYE-2025M1055260AA

PATIENT
  Age: 37 Year
  Sex: Female

DRUGS (8)
  1. TACROLIMUS [Suspect]
     Active Substance: TACROLIMUS
     Indication: Immunosuppressant drug therapy
  2. RIZATRIPTAN BENZOATE [Suspect]
     Active Substance: RIZATRIPTAN BENZOATE
     Indication: Migraine
  3. EVEROLIMUS [Suspect]
     Active Substance: EVEROLIMUS
     Indication: Immunosuppressant drug therapy
  4. LOXOPROFEN [Suspect]
     Active Substance: LOXOPROFEN
     Indication: Migraine
  5. VALPROIC ACID [Suspect]
     Active Substance: VALPROIC ACID
     Indication: Migraine
  6. VALPROIC ACID [Suspect]
     Active Substance: VALPROIC ACID
     Dosage: 600 MILLIGRAM, QD
  7. VALPROIC ACID [Suspect]
     Active Substance: VALPROIC ACID
     Dosage: 800 MILLIGRAM, QD
  8. GALCANEZUMAB [Suspect]
     Active Substance: GALCANEZUMAB
     Indication: Migraine

REACTIONS (2)
  - Thrombotic microangiopathy [Recovering/Resolving]
  - Drug ineffective [Unknown]
